FAERS Safety Report 5419026-4 (Version None)
Quarter: 2007Q3

REPORT INFORMATION
  Report Type: 
  Country: None (occurrence: None)
  Receive Date: 20070817
  Receipt Date: 20070813
  Transmission Date: 20080115
  Serious: Yes (Hospitalization)
  Sender: FDA-Public Use
  Company Number: SE-ABBOTT-04P-150-0279397-00

PATIENT
  Sex: Female

DRUGS (1)
  1. HUMIRA [Suspect]
     Indication: RHEUMATOID ARTHRITIS
     Route: 058
     Dates: start: 20031001

REACTIONS (3)
  - C-REACTIVE PROTEIN INCREASED [None]
  - DIVERTICULITIS [None]
  - INFECTION IN AN IMMUNOCOMPROMISED HOST [None]
